FAERS Safety Report 9905564 (Version 1)
Quarter: 2014Q1

REPORT INFORMATION
  Report Type: Spontaneous
  Country: GB (occurrence: GB)
  Receive Date: 20140218
  Receipt Date: 20140218
  Transmission Date: 20141002
  Serious: Yes (Disabling)
  Sender: FDA-Public Use
  Company Number: GB-GLAXOSMITHKLINE-B0968076A

PATIENT
  Age: 24 Year
  Sex: Male
  Weight: 109 kg

DRUGS (5)
  1. BECLOMETASONE DIPROPIONATE [Suspect]
     Indication: BRONCHOSPASM
     Dosage: 400MCG PER DAY
     Route: 055
     Dates: start: 19980610
  2. OLANZAPINE [Suspect]
  3. PROCYCLIDINE [Suspect]
     Route: 030
  4. BRICANYL [Concomitant]
  5. PULMICORT [Concomitant]

REACTIONS (2)
  - Loss of consciousness [Not Recovered/Not Resolved]
  - Drug interaction [Unknown]
